FAERS Safety Report 7741753-4 (Version None)
Quarter: 2011Q3

REPORT INFORMATION
  Report Type: 
  Country: None (occurrence: None)
  Receive Date: 20110912
  Receipt Date: 20110830
  Transmission Date: 20111222
  Serious: Yes (Hospitalization)
  Sender: FDA-Public Use
  Company Number: US-BIOGENIDEC-2011BI033243

PATIENT
  Age: 60 Year
  Sex: Female

DRUGS (3)
  1. AVONEX [Suspect]
     Route: 030
     Dates: start: 20050604, end: 20070928
  2. AVONEX [Suspect]
     Route: 030
     Dates: start: 20040501
  3. AVONEX [Suspect]
     Indication: MULTIPLE SCLEROSIS
     Route: 030
     Dates: start: 20090319

REACTIONS (3)
  - GASTROINTESTINAL HAEMORRHAGE [None]
  - MUSCULAR WEAKNESS [None]
  - SPINAL COLUMN STENOSIS [None]
